FAERS Safety Report 4502849-3 (Version None)
Quarter: 2004Q4

REPORT INFORMATION
  Report Type: 
  Country: None (occurrence: None)
  Receive Date: 20041116
  Receipt Date: 20041116
  Transmission Date: 20050328
  Serious: Yes (Other)
  Sender: FDA-Public Use
  Company Number: None

PATIENT
  Age: 55 Year
  Sex: Female
  Weight: 72.5755 kg

DRUGS (2)
  1. EFFEXOR XR [Suspect]
     Indication: ANXIETY
     Dosage: 75 MG DAY ORAL
     Route: 048
     Dates: start: 20040910, end: 20041008
  2. EFFEXOR XR [Suspect]
     Indication: DYSTHYMIC DISORDER
     Dosage: 75 MG DAY ORAL
     Route: 048
     Dates: start: 20040910, end: 20041008

REACTIONS (15)
  - AGITATION [None]
  - ANGER [None]
  - BEDRIDDEN [None]
  - BLOOD PRESSURE INCREASED [None]
  - CRYING [None]
  - EMOTIONAL DISTRESS [None]
  - FEELING ABNORMAL [None]
  - HOT FLUSH [None]
  - HYPERSOMNIA [None]
  - INFLUENZA [None]
  - NIGHT SWEATS [None]
  - PAIN [None]
  - RASH [None]
  - SUICIDAL IDEATION [None]
  - WEIGHT INCREASED [None]
